FAERS Safety Report 5343363-5 (Version None)
Quarter: 2007Q2

REPORT INFORMATION
  Report Type: 
  Country: None (occurrence: None)
  Receive Date: 20070501
  Receipt Date: 20070228
  Transmission Date: 20071010
  Serious: Yes (Disabling)
  Sender: FDA-Public Use
  Company Number: 200710133US

PATIENT
  Age: 19 Year
  Sex: Male

DRUGS (2)
  1. KETEK [Suspect]
     Indication: BRONCHITIS
     Dosage: QD PO
     Route: 048
     Dates: start: 20061201, end: 20061202
  2. PENTOXYVERINE TANNATE/MEPYRAMINE TANNATE/PHENYLEPHRINE TANNATE [Concomitant]

REACTIONS (2)
  - NAUSEA [None]
  - VISION BLURRED [None]
